FAERS Safety Report 24624374 (Version 1)
Quarter: 2024Q4

REPORT INFORMATION
  Report Type: Spontaneous
  Country: US (occurrence: None)
  Receive Date: 20241114
  Receipt Date: 20241114
  Transmission Date: 20250115
  Serious: Yes (Other)
  Sender: Public
  Company Number: None

PATIENT
  Age: 34 Year
  Sex: Female
  Weight: 75.75 kg

DRUGS (1)
  1. VYVANSE [Suspect]
     Active Substance: LISDEXAMFETAMINE DIMESYLATE
     Indication: Attention deficit hyperactivity disorder
     Dosage: OTHER QUANTITY : 1 X IN A.M.;?FREQUENCY : DAILY;?
     Route: 048

REACTIONS (3)
  - Depression [None]
  - Suicidal ideation [None]
  - Paradoxical drug reaction [None]

NARRATIVE: CASE EVENT DATE: 20241108
